FAERS Safety Report 4455592-3 (Version None)
Quarter: 2004Q3

REPORT INFORMATION
  Report Type: 
  Country: None (occurrence: None)
  Receive Date: 20040922
  Receipt Date: 20040914
  Transmission Date: 20050211
  Serious: Yes (Other)
  Sender: FDA-Public Use
  Company Number: 200417018US

PATIENT
  Age: 62 Year
  Sex: Female

DRUGS (1)
  1. KETEK [Suspect]
     Indication: LOCALISED INFECTION
     Dosage: DOSE: UNK
     Dates: start: 20040909, end: 20040911

REACTIONS (3)
  - DEHYDRATION [None]
  - DIARRHOEA [None]
  - DISORIENTATION [None]
